FAERS Safety Report 10233476 (Version 2)
Quarter: 2014Q2

REPORT INFORMATION
  Report Type: Report from Study
  Country: US (occurrence: US)
  Receive Date: 20140612
  Receipt Date: 20140612
  Transmission Date: 20141212
  Serious: Yes (Other)
  Sender: FDA-Public Use
  Company Number: PHEH2014US009259

PATIENT
  Sex: Female

DRUGS (13)
  1. OXCARBAZEPINE [Suspect]
     Dosage: 2 DF, TID (IN MORNING, AFTERNOON AND BEDTIME)
     Route: 048
  2. CLONIDINE HCL [Concomitant]
     Dosage: 0.1 MG, TID
     Route: 048
  3. SINGULAIR [Concomitant]
     Dosage: 10 MG, QD
     Route: 048
  4. RISPERIDONE [Concomitant]
     Dosage: 1 MG, QD
     Route: 048
  5. CETIRIZINE HCL [Concomitant]
     Dosage: 10 MG, QD
     Route: 048
  6. SEASONIQUE [Concomitant]
     Dosage: 0.15 MG, UNK
     Route: 048
  7. POLYMYXIN B W/TRIMETHOPRIM [Concomitant]
     Dosage: 0.1 MG, QD
  8. LORAZEPAM [Concomitant]
     Dosage: 0.5 MG, BID
     Route: 048
  9. PREDNISONE [Concomitant]
     Dosage: 5 TABS X 2 DAY
     Route: 048
  10. PREDNISONE [Concomitant]
     Dosage: 4 TABS X 2 DAY
     Route: 048
  11. PREDNISONE [Concomitant]
     Dosage: 3 TABS X 2 DAY
     Route: 048
  12. PREDNISONE [Concomitant]
     Dosage: 2 TABS X 2 DAY
     Route: 048
  13. PREDNISONE [Concomitant]
     Dosage: 1 TABS X 2 DAY
     Route: 048

REACTIONS (3)
  - Autism [Unknown]
  - Emotional disorder [Unknown]
  - Drug ineffective [Unknown]
